FAERS Safety Report 19668466 (Version 1)
Quarter: 2021Q3

REPORT INFORMATION
  Report Type: Spontaneous
  Country: TN (occurrence: TN)
  Receive Date: 20210806
  Receipt Date: 20210806
  Transmission Date: 20211014
  Serious: Yes (Other)
  Sender: FDA-Public Use
  Company Number: TN-MYLANLABS-2021M1049205

PATIENT
  Age: 1 Decade
  Sex: Male

DRUGS (7)
  1. LAMOTRIGINE. [Interacting]
     Active Substance: LAMOTRIGINE
     Indication: PARTIAL SEIZURES
     Dosage: LATER DOSE INCREASED
     Route: 065
  2. LAMOTRIGINE. [Interacting]
     Active Substance: LAMOTRIGINE
     Dosage: 9 MILLIGRAM/KILOGRAM, QD
     Route: 065
  3. CLONAZEPAM. [Suspect]
     Active Substance: CLONAZEPAM
     Dosage: UNK (DOSE DECREASED)
     Route: 065
  4. CLONAZEPAM. [Suspect]
     Active Substance: CLONAZEPAM
     Indication: PARTIAL SEIZURES
     Dosage: 0.06 MILLIGRAM/KILOGRAM, QD
     Route: 065
  5. VALPROIC ACID. [Suspect]
     Active Substance: VALPROIC ACID
     Indication: PARTIAL SEIZURES
     Dosage: 30 MILLIGRAM/KILOGRAM, QD
     Route: 065
  6. VALPROIC ACID. [Interacting]
     Active Substance: VALPROIC ACID
     Dosage: AGAIN INCREASED TO 30 MG/KG/DAY
     Route: 065
  7. ETHOSUXIMIDE. [Suspect]
     Active Substance: ETHOSUXIMIDE
     Indication: PARTIAL SEIZURES
     Dosage: 30 MILLIGRAM/KILOGRAM, QD
     Route: 065

REACTIONS (5)
  - Opsoclonus myoclonus [Recovered/Resolved]
  - Drug interaction [Recovered/Resolved]
  - Overdose [Recovered/Resolved]
  - Drug ineffective [Unknown]
  - Toxicity to various agents [Recovered/Resolved]
